FAERS Safety Report 20001892 (Version 7)
Quarter: 2023Q2

REPORT INFORMATION
  Report Type: Report from Study
  Country: JP (occurrence: JP)
  Receive Date: 20211027
  Receipt Date: 20230427
  Transmission Date: 20230722
  Serious: Yes (Life-Threatening, Hospitalization, Other)
  Sender: FDA-Public Use
  Company Number: JP-VIIV HEALTHCARE LIMITED-JP2021JPN221760

PATIENT

DRUGS (11)
  1. DOLUTEGRAVIR [Suspect]
     Active Substance: DOLUTEGRAVIR
     Indication: HIV infection
     Dosage: 50 MG, 1D
     Dates: start: 20151128
  2. DESCOVY [Suspect]
     Active Substance: EMTRICITABINE\TENOFOVIR ALAFENAMIDE FUMARATE
     Indication: HIV infection
     Dosage: 1 DF, 1D
     Dates: start: 20170520
  3. TRUVADA [Suspect]
     Active Substance: EMTRICITABINE\TENOFOVIR DISOPROXIL FUMARATE
     Indication: HIV infection
     Dosage: 1 DF, 1D
     Dates: start: 20121116, end: 20170519
  4. SAWACILLIN CAPSULES 250 [Concomitant]
     Dosage: UNK
     Dates: start: 20151128, end: 20151205
  5. SAWACILLIN CAPSULES 250 [Concomitant]
     Dosage: UNK
     Dates: start: 20170520, end: 20170527
  6. PL [Concomitant]
     Active Substance: ACETAMINOPHEN\CAFFEINE\PROMETHAZINE\SALICYLAMIDE
     Dosage: UNK
     Dates: start: 20151128, end: 20151205
  7. PL [Concomitant]
     Active Substance: ACETAMINOPHEN\CAFFEINE\PROMETHAZINE\SALICYLAMIDE
     Dosage: UNK
     Dates: start: 20161001, end: 20161008
  8. PL [Concomitant]
     Active Substance: ACETAMINOPHEN\CAFFEINE\PROMETHAZINE\SALICYLAMIDE
     Dosage: UNK
     Dates: start: 20170520, end: 20170527
  9. TRANSAMIN CAPSULES [Concomitant]
     Dosage: UNK
     Dates: start: 20151128, end: 20151205
  10. TRANSAMIN CAPSULES [Concomitant]
     Dosage: UNK
     Dates: start: 20161001, end: 20161008
  11. TRANSAMIN CAPSULES [Concomitant]
     Dosage: UNK
     Dates: start: 20170520, end: 20170527

REACTIONS (9)
  - Suicidal ideation [Recovered/Resolved]
  - Diarrhoea [Recovered/Resolved]
  - Diarrhoea [Not Recovered/Not Resolved]
  - Hepatic function abnormal [Not Recovered/Not Resolved]
  - Dyslipidaemia [Not Recovered/Not Resolved]
  - Amoebiasis [Recovered/Resolved]
  - Nasopharyngitis [Recovered/Resolved]
  - Pharyngitis [Recovered/Resolved]
  - Amoebic dysentery [Recovering/Resolving]

NARRATIVE: CASE EVENT DATE: 20161001
